FAERS Safety Report 24055726 (Version 2)
Quarter: 2024Q3

REPORT INFORMATION
  Report Type: Spontaneous
  Country: US (occurrence: US)
  Receive Date: 20240705
  Receipt Date: 20240711
  Transmission Date: 20241016
  Serious: Yes (Other)
  Sender: BAYER
  Company Number: US-BAYER-2024A096244

PATIENT
  Age: 60 Year
  Sex: Female

DRUGS (2)
  1. ALKA-SELTZER PLUS MAXIMUM STRENGTH NIGHT COLD AND FLU POWERMAX GELS [Suspect]
     Active Substance: ACETAMINOPHEN\DEXTROMETHORPHAN HYDROBROMIDE\DOXYLAMINE SUCCINATE\PHENYLEPHRINE HYDROCHLORIDE
     Indication: Hypersensitivity
     Dosage: 1 DF, ONCE
     Route: 048
  2. ALKA-SELTZER PLUS MAXIMUM STRENGTH NIGHT COLD AND FLU POWERMAX GELS [Suspect]
     Active Substance: ACETAMINOPHEN\DEXTROMETHORPHAN HYDROBROMIDE\DOXYLAMINE SUCCINATE\PHENYLEPHRINE HYDROCHLORIDE
     Indication: Nasopharyngitis

REACTIONS (2)
  - Foreign body in throat [Recovered/Resolved]
  - Throat irritation [None]

NARRATIVE: CASE EVENT DATE: 20240622
